FAERS Safety Report 13613311 (Version 3)
Quarter: 2018Q1

REPORT INFORMATION
  Report Type: Report from Study
  Country: US (occurrence: US)
  Receive Date: 20170605
  Receipt Date: 20180103
  Transmission Date: 20180508
  Serious: Yes (Hospitalization)
  Sender: FDA-Public Use
  Company Number: US-ACTELION-A-US2017-149066

PATIENT
  Age: 48 Year
  Sex: Female
  Weight: 61.68 kg

DRUGS (10)
  1. OPSUMIT [Suspect]
     Active Substance: MACITENTAN
     Indication: PULMONARY HYPERTENSION
     Dosage: 10 MG, QD
     Route: 048
     Dates: start: 20161220
  2. VELETRI [Suspect]
     Active Substance: EPOPROSTENOL
     Indication: PULMONARY HYPERTENSION
     Dosage: 10 NG/KG, PER MIN
     Route: 042
  3. ADCIRCA [Concomitant]
     Active Substance: TADALAFIL
     Dosage: UNK
  4. SILDENAFIL. [Concomitant]
     Active Substance: SILDENAFIL
  5. VELETRI [Suspect]
     Active Substance: EPOPROSTENOL
     Dosage: 16 NG/KG, PER MIN
     Route: 042
  6. OPSUMIT [Suspect]
     Active Substance: MACITENTAN
     Dosage: UNK
     Route: 048
  7. VELETRI [Suspect]
     Active Substance: EPOPROSTENOL
     Dosage: 30.3 NG/KG, PER MIN
     Route: 042
  8. VELETRI [Suspect]
     Active Substance: EPOPROSTENOL
     Dosage: 12 NG/KG, PER MIN
     Route: 042
     Dates: start: 20170315
  9. VELETRI [Suspect]
     Active Substance: EPOPROSTENOL
     Dosage: 7 NG/KG, PER MIN
     Route: 042
     Dates: start: 20170126
  10. VELETRI [Suspect]
     Active Substance: EPOPROSTENOL
     Dosage: 14 NG/KG, PER MIN
     Route: 042

REACTIONS (30)
  - Oedema peripheral [Unknown]
  - Varices oesophageal [Unknown]
  - Telangiectasia [Unknown]
  - Pain in jaw [Unknown]
  - Diarrhoea [Unknown]
  - Transfusion [Unknown]
  - Dyspnoea [Recovering/Resolving]
  - Arthralgia [Unknown]
  - Muscular weakness [Unknown]
  - Catheter site pruritus [Unknown]
  - Headache [Unknown]
  - Dizziness [Unknown]
  - Hypotension [Unknown]
  - Iron deficiency anaemia [Recovering/Resolving]
  - Cardiac failure [Unknown]
  - Rheumatoid arthritis [Unknown]
  - Nasal congestion [Unknown]
  - Therapy non-responder [Recovering/Resolving]
  - Pleural effusion [Unknown]
  - Systemic lupus erythematosus [Unknown]
  - Dyspnoea exertional [Unknown]
  - Fluid overload [Unknown]
  - Orthopnoea [Unknown]
  - Atelectasis [Unknown]
  - Cardiomegaly [Unknown]
  - Weight decreased [Unknown]
  - Ascites [Recovered/Resolved]
  - Abdominal distension [Recovering/Resolving]
  - Catheter site rash [Unknown]
  - Weight increased [Unknown]

NARRATIVE: CASE EVENT DATE: 20170303
